FAERS Safety Report 20438026 (Version 1)
Quarter: 2022Q1

REPORT INFORMATION
  Report Type: Spontaneous
  Country: NL (occurrence: NL)
  Receive Date: 20220207
  Receipt Date: 20220207
  Transmission Date: 20220423
  Serious: Yes (Hospitalization)
  Sender: FDA-Public Use
  Company Number: None

PATIENT
  Age: 61 Year
  Sex: Male
  Weight: 106 kg

DRUGS (8)
  1. CLOPIDOGREL [Interacting]
     Active Substance: CLOPIDOGREL BISULFATE
     Indication: Product used for unknown indication
     Dosage: 75 MG ,CLOPIDOGREL TABLET   75MG / BRAND NAME NOT SPECIFIED,THERAPY START DATE : NASK,THERAPY END DA
  2. ESOMEPRAZOLE [Interacting]
     Active Substance: ESOMEPRAZOLE
     Indication: Prophylaxis
     Dosage: 80 MILLIGRAM DAILY; 2X PER DAY 1 PIECE ,ESOMEPRAZOL TABLET MSR 40MG / BRAND NAME NOT SPECIFIED,THERA
     Dates: start: 20201124
  3. BISOPROLOL/PERINDOPRIL-ARGININE [Concomitant]
     Dosage: 2.5 MG,BISOPROLOL/PERINDOPRIL-ARGININE TABLET  5/ 5MG / BRAND NAME NOT SPECIFIED,THERAPY START DATE
  4. BISOPROLOL FUMARATE [Concomitant]
     Active Substance: BISOPROLOL FUMARATE
     Dosage: 2,5 MG,BISOPROLOL TABLET 2,5MG / BISOPROLOL FUMARATE DECO AUROB TABL FILMOMH 2,5MG,THERAPY START DAT
  5. ROPINIROLE [Concomitant]
     Active Substance: ROPINIROLE
     Dosage: 0.25 MG, ROPINIROL TABLET COATED 0.25MG / BRAND NAME NOT SPECIFIED, THERAPY START DATE AND END DATE
  6. PANTOPRAZOLE [Concomitant]
     Active Substance: PANTOPRAZOLE
     Dosage: 40MG. THIS WAS GIVEN ON JANUARY 18, 2021 TO REPLACE ESOMEPRASOL.PANTOPRAZOL TABLET MSR 40MG / PANTOP
  7. SIMVASTATIN [Concomitant]
     Active Substance: SIMVASTATIN
     Dosage: 40 MG,THERAPY START DATE AND END DATE : ASKU,SIMVASTATIN TABLET FO 40MG / SIMVASTATIN SANDOZ TABLET
  8. VALPROATE SODIUM [Concomitant]
     Active Substance: VALPROATE SODIUM
     Dosage: GASTRO-RESISTANT TABLET, 500 MG,VALPROINEZUUR TABLET MSR 500MG / DEPAKINE ENTERIC TABLET MSR 500MG,T

REACTIONS (7)
  - Extrasystoles [Recovered/Resolved]
  - Heart rate irregular [Recovered/Resolved]
  - Head discomfort [Recovered/Resolved]
  - Gynaecomastia [Not Recovered/Not Resolved]
  - Peripheral coldness [Recovering/Resolving]
  - Drug interaction [Unknown]
  - Headache [Recovered/Resolved]

NARRATIVE: CASE EVENT DATE: 20201208
